FAERS Safety Report 9735463 (Version 1)
Quarter: 2013Q4

REPORT INFORMATION
  Report Type: Spontaneous
  Country: US (occurrence: US)
  Receive Date: 20131206
  Receipt Date: 20131206
  Transmission Date: 20140711
  Serious: No
  Sender: FDA-Public Use
  Company Number: US-GILEAD-2009-0023303

PATIENT
  Sex: Female
  Weight: 72.57 kg

DRUGS (6)
  1. LETAIRIS [Suspect]
     Indication: PULMONARY ARTERIAL HYPERTENSION
     Route: 048
     Dates: start: 20090709
  2. ASPIRIN [Concomitant]
  3. TRAZODONE [Concomitant]
  4. LITHIUM ER [Concomitant]
  5. FAMOTIDINE [Concomitant]
  6. HYDROCODONE APAP [Concomitant]

REACTIONS (3)
  - Chest pain [Unknown]
  - Nervousness [Unknown]
  - Tremor [Unknown]
